FAERS Safety Report 13393574 (Version 2)
Quarter: 2017Q2

REPORT INFORMATION
  Report Type: Spontaneous
  Country: US (occurrence: US)
  Receive Date: 20170331
  Receipt Date: 20170502
  Transmission Date: 20170830
  Serious: Yes (Other)
  Sender: FDA-Public Use
  Company Number: US-SHIRE-US201707269

PATIENT
  Age: 72 Year
  Sex: Female
  Weight: 61.8 kg

DRUGS (5)
  1. ERYTHROMYCIN. [Concomitant]
     Active Substance: ERYTHROMYCIN
     Indication: DRY EYE
     Dosage: UNK UNK, 3X/DAY:TID (LEFT EYE)
     Route: 047
     Dates: start: 20161007, end: 20170228
  2. REFRESH PLUS [Concomitant]
     Active Substance: CARBOXYMETHYLCELLULOSE SODIUM
     Indication: PRODUCT USED FOR UNKNOWN INDICATION
     Dosage: UNK, 4X/DAY:QID (LEFT EYE)
     Route: 047
  3. ERYTHROMYCIN. [Concomitant]
     Active Substance: ERYTHROMYCIN
     Dosage: UNK, 3X/DAY:TID (LEFT EYE)
     Route: 047
     Dates: start: 20170328
  4. XIIDRA [Suspect]
     Active Substance: LIFITEGRAST
     Indication: DRY EYE
     Dosage: 1 GTT, 2X/DAY:BID (LEFT EYE)
     Route: 047
     Dates: start: 20170213, end: 20170215
  5. LOTEMAX [Concomitant]
     Active Substance: LOTEPREDNOL ETABONATE
     Indication: DRY EYE
     Dosage: UNK, 2X/DAY:BID (LEFT EYE)
     Route: 047
     Dates: start: 201604, end: 20170228

REACTIONS (7)
  - Keratitis [Not Recovered/Not Resolved]
  - Instillation site erythema [Unknown]
  - Visual acuity reduced [Not Recovered/Not Resolved]
  - Incorrect product storage [Recovered/Resolved]
  - Drug prescribing error [Recovered/Resolved]
  - Vision blurred [Not Recovered/Not Resolved]
  - Keratomalacia [Not Recovered/Not Resolved]

NARRATIVE: CASE EVENT DATE: 201702
